FAERS Safety Report 9922309 (Version 1)
Quarter: 2014Q1

REPORT INFORMATION
  Report Type: Spontaneous
  Country: CH (occurrence: CH)
  Receive Date: 20140225
  Receipt Date: 20140225
  Transmission Date: 20141002
  Serious: Yes (Hospitalization)
  Sender: FDA-Public Use
  Company Number: CH-GLAXOSMITHKLINE-B0971731A

PATIENT
  Age: 93 Year
  Sex: Male
  Weight: 89 kg

DRUGS (8)
  1. VITAMIN D3 [Concomitant]
     Indication: VITAMIN D DEFICIENCY
     Dosage: 800IU PER DAY
     Route: 048
     Dates: start: 20131001
  2. VALTREX [Suspect]
     Indication: HERPES ZOSTER
     Dosage: 1G THREE TIMES PER DAY
     Route: 048
     Dates: start: 20130923, end: 20130930
  3. MOGADON [Suspect]
     Indication: INSOMNIA
     Dosage: 2.5MG PER DAY
     Route: 065
     Dates: start: 2007, end: 20130918
  4. DIGOXIN [Suspect]
     Indication: ATRIAL FIBRILLATION
     Dosage: .125MG PER DAY
     Route: 048
     Dates: start: 2007
  5. ASPIRIN [Concomitant]
     Indication: ATRIAL FIBRILLATION
     Dosage: 100MG PER DAY
     Route: 048
     Dates: start: 20131002
  6. LASIX [Concomitant]
     Indication: CARDIAC FAILURE
     Dosage: 40MG TWICE PER DAY
     Route: 048
     Dates: start: 20130918
  7. ZYLORIC [Concomitant]
     Indication: GOUT
     Dosage: 100MG PER DAY
     Route: 048
     Dates: start: 2007
  8. CLEXANE [Concomitant]
     Indication: THROMBOSIS PROPHYLAXIS
     Dosage: 40MG PER DAY
     Route: 042
     Dates: start: 20130918

REACTIONS (1)
  - Persecutory delusion [Recovered/Resolved]
